FAERS Safety Report 5486289-9 (Version None)
Quarter: 2007Q4

REPORT INFORMATION
  Report Type: 
  Country: None (occurrence: None)
  Receive Date: 20071016
  Receipt Date: 20071009
  Transmission Date: 20080405
  Serious: Yes (Other)
  Sender: FDA-Public Use
  Company Number: PHBS2007NO16884

PATIENT
  Age: 53 Year
  Sex: Female

DRUGS (1)
  1. VOLTAREN [Suspect]

REACTIONS (2)
  - DEAFNESS UNILATERAL [None]
  - TINNITUS [None]
